FAERS Safety Report 13385096 (Version 1)
Quarter: 2017Q1

REPORT INFORMATION
  Report Type: Spontaneous
  Country: US (occurrence: US)
  Receive Date: 20170330
  Receipt Date: 20170330
  Transmission Date: 20170429
  Serious: Yes (Disabling)
  Sender: FDA-Public Use
  Company Number: None

PATIENT
  Age: 55 Year
  Sex: Female
  Weight: 65.25 kg

DRUGS (13)
  1. CLONAZAPAM [Concomitant]
     Active Substance: CLONAZEPAM
  2. HORMONE BIOIDENTICAL CREME [Concomitant]
  3. HYDOCORDONE [Concomitant]
  4. DAILY VITAMIN [Concomitant]
     Active Substance: VITAMINS
  5. VITAMIN C [Concomitant]
     Active Substance: ASCORBIC ACID
  6. COENZYME Q10 [Concomitant]
     Active Substance: UBIDECARENONE
  7. TRIAM/HTCZ [Concomitant]
  8. VITAMIN D3 [Concomitant]
     Active Substance: CHOLECALCIFEROL
  9. CALCIUM [Concomitant]
     Active Substance: CALCIUM
  10. LEVYTHYROXIN [Concomitant]
  11. CYMBALTA [Suspect]
     Active Substance: DULOXETINE HYDROCHLORIDE
     Indication: ANALGESIC THERAPY
     Dosage: ?          QUANTITY:1 CAPSULE(S);?
     Route: 048
     Dates: start: 20161006, end: 20161216
  12. ADDERALL [Concomitant]
     Active Substance: AMPHETAMINE ASPARTATE\AMPHETAMINE SULFATE\DEXTROAMPHETAMINE SACCHARATE\DEXTROAMPHETAMINE SULFATE
  13. POTASSIUM [Concomitant]
     Active Substance: POTASSIUM

REACTIONS (16)
  - Lethargy [None]
  - Dry eye [None]
  - Withdrawal syndrome [None]
  - Dizziness [None]
  - Blepharospasm [None]
  - Infrequent bowel movements [None]
  - Confusional state [None]
  - Swelling face [None]
  - Vision blurred [None]
  - Dysuria [None]
  - Weight increased [None]
  - Arthralgia [None]
  - Fatigue [None]
  - Bedridden [None]
  - Dry mouth [None]
  - Speech disorder [None]

NARRATIVE: CASE EVENT DATE: 20161125
